FAERS Safety Report 5034806-5 (Version None)
Quarter: 2006Q2

REPORT INFORMATION
  Report Type: 
  Country: None (occurrence: None)
  Receive Date: 20060509
  Receipt Date: 20051017
  Transmission Date: 20061013
  Serious: Yes (Hospitalization)
  Sender: FDA-Public Use
  Company Number: 421782

PATIENT
  Age: 77 Year
  Sex: Female

DRUGS (4)
  1. NAPROSYN [Suspect]
     Indication: BACK PAIN
     Dosage: 500 MG 2 PER DAY ORAL
     Route: 048
     Dates: end: 20041115
  2. NAPROSYN [Suspect]
     Indication: PAIN IN EXTREMITY
     Dosage: 500 MG 2 PER DAY ORAL
     Route: 048
     Dates: end: 20041115
  3. NON-STEROIDAL ANTI-INFLAMMATORY DRUG NOS(NON STEROIDAL ANTI-INFLAMATOR [Suspect]
     Indication: BACK PAIN
     Dosage: ORAL
     Route: 048
  4. NON-STEROIDAL ANTI-INFLAMMATORY DRUG NOS(NON STEROIDAL ANTI-INFLAMATOR [Suspect]
     Indication: PAIN IN EXTREMITY
     Dosage: ORAL
     Route: 048

REACTIONS (1)
  - CELLULITIS [None]
